FAERS Safety Report 7210558-5 (Version None)
Quarter: 2011Q1

REPORT INFORMATION
  Report Type: 
  Country: None (occurrence: None)
  Receive Date: 20110105
  Receipt Date: 20101231
  Transmission Date: 20110831
  Serious: Yes (Hospitalization)
  Sender: FDA-Public Use
  Company Number: GB-ROCHE-751296

PATIENT
  Sex: Female

DRUGS (1)
  1. RIVOTRIL [Suspect]
     Route: 048

REACTIONS (1)
  - PNEUMONIA ASPIRATION [None]
